FAERS Safety Report 20954111 (Version 2)
Quarter: 2022Q2

REPORT INFORMATION
  Report Type: Report from Study
  Country: CN (occurrence: CN)
  Receive Date: 20220614
  Receipt Date: 20220621
  Transmission Date: 20220721
  Serious: Yes (Other)
  Sender: FDA-Public Use
  Company Number: CN-AMGEN-CHNSL2022097690

PATIENT
  Age: 41 Year
  Sex: Male

DRUGS (2)
  1. XGEVA [Suspect]
     Active Substance: DENOSUMAB
     Indication: Osteolysis
     Dosage: 120 MILLIGRAM, QMO
     Route: 065
     Dates: start: 20220317
  2. XGEVA [Suspect]
     Active Substance: DENOSUMAB
     Indication: Osteonecrosis

REACTIONS (1)
  - Osteonecrosis [Unknown]
